FAERS Safety Report 7740006 (Version 2)
Quarter: 2012Q4

REPORT INFORMATION
  Report Type: 
  Country: BR (occurrence: BR)
  Receive Date: 20101227
  Receipt Date: 20121123
  Transmission Date: 20130627
  Serious: Yes (Hospitalization, Other)
  Sender: FDA-Public Use
  Company Number: BR-SANOFI-AVENTIS-2010SA077545

PATIENT
  Age: 73 Year
  Sex: Male
  Weight: 68 kg

DRUGS (11)
  1. LANTUS SOLOSTAR [Suspect]
     Indication: TYPE II DIABETES MELLITUS
     Route: 058
     Dates: start: 2009
  2. SOLOSTAR [Suspect]
     Indication: DEVICE THERAPY
     Dates: start: 2009
  3. ATENOLOL [Concomitant]
     Indication: HYPERTENSION
     Route: 048
  4. LOSARTAN [Concomitant]
     Indication: HYPERTENSION
     Route: 048
  5. SEROQUEL [Concomitant]
     Indication: SEDATION
     Route: 048
     Dates: start: 201006
  6. ALL OTHER THERAPEUTIC PRODUCTS [Concomitant]
     Indication: DEMENTIA
     Route: 048
     Dates: start: 201006
  7. EXELON [Concomitant]
     Indication: DEMENTIA
  8. INSULINS AND ANALOGUES,FAST-ACTING [Concomitant]
     Indication: TYPE II DIABETES MELLITUS
     Dosage: according to glycemia
     Route: 058
  9. CLOMIPRAMINE [Concomitant]
     Route: 048
  10. OLANZAPINE [Concomitant]
     Route: 048
  11. METFORMIN [Concomitant]
     Indication: TYPE 2 DIABETES MELLITUS
     Route: 048

REACTIONS (3)
  - Femur fracture [Unknown]
  - Dementia [Unknown]
  - Blood glucose increased [Recovered/Resolved]
